FAERS Safety Report 7373811-0 (Version None)
Quarter: 2011Q1

REPORT INFORMATION
  Report Type: 
  Country: None (occurrence: None)
  Receive Date: 20110325
  Receipt Date: 20110318
  Transmission Date: 20110831
  Serious: Yes (Other)
  Sender: FDA-Public Use
  Company Number: US-PFIZER INC-2011061748

PATIENT
  Sex: Male

DRUGS (1)
  1. CHANTIX [Suspect]
     Dosage: UNK
     Dates: start: 20081003

REACTIONS (7)
  - DEPRESSED MOOD [None]
  - ANXIETY [None]
  - SUICIDAL IDEATION [None]
  - PARANOIA [None]
  - MOOD SWINGS [None]
  - MENTAL DISORDER [None]
  - EMOTIONAL DISORDER [None]
